FAERS Safety Report 9448057 (Version 2)
Quarter: 2013Q3

REPORT INFORMATION
  Report Type: Report from Study
  Country: US (occurrence: US)
  Receive Date: 20130808
  Receipt Date: 20130920
  Transmission Date: 20140515
  Serious: Yes (Hospitalization, Other)
  Sender: FDA-Public Use
  Company Number: US-ALEXION PHARMACEUTICALS INC.-A201301799

PATIENT
  Sex: Female

DRUGS (1)
  1. SOLIRIS [Suspect]
     Indication: HAEMOLYTIC URAEMIC SYNDROME
     Dosage: UNK
     Route: 042

REACTIONS (7)
  - Complication of pregnancy [Unknown]
  - Abortion induced [Unknown]
  - Female sterilisation [Unknown]
  - Exposure during pregnancy [Unknown]
  - Dysphonia [Unknown]
  - Asthenia [Unknown]
  - Headache [Unknown]
